FAERS Safety Report 8285504-6 (Version None)
Quarter: 2012Q2

REPORT INFORMATION
  Report Type: 
  Country: None (occurrence: None)
  Receive Date: 20120413
  Receipt Date: 20111214
  Transmission Date: 20120825
  Serious: No
  Sender: FDA-Public Use
  Company Number: US-ASTRAZENECA-2002UW15680

PATIENT
  Age: 90 Year
  Sex: Male
  Weight: 61.2 kg

DRUGS (12)
  1. ISOSORBIDE DINITRATE [Concomitant]
  2. TOPROL ER [Concomitant]
     Indication: CARDIAC DISORDER
  3. LISINOPRIL [Concomitant]
     Indication: BLOOD PRESSURE ABNORMAL
  4. ZANTAX [Concomitant]
     Indication: ANXIETY DISORDER
  5. CARDIZEM CD [Concomitant]
  6. LEVOTHORAXIN [Concomitant]
     Indication: THYROID DISORDER
  7. SEROQUEL [Suspect]
     Indication: DEMENTIA ALZHEIMER'S TYPE
     Dosage: TOTAL DAILY DOSE 25MG. TWO TIMES A DAY
     Route: 048
  8. VITAMIN TAB [Concomitant]
  9. DOC-Q-LATE [Concomitant]
  10. MEGASTROLE ACETATE [Concomitant]
     Indication: APPETITE DISORDER
  11. NEXIUM [Suspect]
     Indication: DYSPEPSIA
     Route: 048
  12. CARDURA [Concomitant]

REACTIONS (4)
  - AGGRESSION [None]
  - DIARRHOEA [None]
  - SCREAMING [None]
  - DRUG DOSE OMISSION [None]
